FAERS Safety Report 17442290 (Version 1)
Quarter: 2020Q1

REPORT INFORMATION
  Report Type: Spontaneous
  Country: FR (occurrence: FR)
  Receive Date: 20200220
  Receipt Date: 20200220
  Transmission Date: 20200409
  Serious: Yes (Hospitalization)
  Sender: FDA-Public Use
  Company Number: FR-NAPPMUNDI-GBR-2020-0075118

PATIENT
  Age: 70 Year
  Sex: Male
  Weight: 103.3 kg

DRUGS (15)
  1. OXYCODONE [Suspect]
     Active Substance: OXYCODONE
     Indication: CANCER PAIN
     Dosage: 240 MG, DAILY
     Route: 048
     Dates: start: 20190910
  2. TAMSULOSIN [Concomitant]
     Active Substance: TAMSULOSIN
  3. ENALAPRIL [Concomitant]
     Active Substance: ENALAPRIL
  4. SOLUPRED                           /00049602/ [Concomitant]
     Active Substance: METHYLPREDNISOLONE SODIUM SUCCINATE
  5. SYMBICORT [Concomitant]
     Active Substance: BUDESONIDE\FORMOTEROL FUMARATE DIHYDRATE
  6. FUROSEMIDE. [Concomitant]
     Active Substance: FUROSEMIDE
  7. LOXEN [Concomitant]
  8. PANTOPRAZOLE [Concomitant]
     Active Substance: PANTOPRAZOLE
  9. FINASTERIDE. [Concomitant]
     Active Substance: FINASTERIDE
  10. OXYNORMORO [Suspect]
     Active Substance: OXYCODONE HYDROCHLORIDE
     Indication: CANCER PAIN
     Dosage: 1 DF, UNK (STRENGTH 5 MG)
     Route: 048
     Dates: start: 20190910
  11. VERSATIS [Concomitant]
     Active Substance: LIDOCAINE
  12. BECLOMETASONE DIPROPIONATE [Concomitant]
     Active Substance: BECLOMETHASONE DIPROPIONATE
  13. NEFOPAM HYDROCHLORIDE [Concomitant]
     Active Substance: NEFOPAM HYDROCHLORIDE
  14. ATROVENT [Concomitant]
     Active Substance: IPRATROPIUM BROMIDE
  15. PREGABALIN. [Concomitant]
     Active Substance: PREGABALIN

REACTIONS (3)
  - Constipation [Not Recovered/Not Resolved]
  - Urinary retention [Not Recovered/Not Resolved]
  - Delirium [Recovered/Resolved]

NARRATIVE: CASE EVENT DATE: 20190919
